FAERS Safety Report 10904875 (Version 1)
Quarter: 2015Q1

REPORT INFORMATION
  Report Type: Spontaneous
  Country: GB (occurrence: GB)
  Receive Date: 20150311
  Receipt Date: 20150311
  Transmission Date: 20150721
  Serious: Yes (Death, Other)
  Sender: FDA-Public Use
  Company Number: GB-ASTRAZENECA-2015SE22155

PATIENT
  Age: 69 Year
  Sex: Male

DRUGS (1)
  1. MEROPENEM. [Suspect]
     Active Substance: MEROPENEM
     Indication: INFECTION
     Route: 042

REACTIONS (3)
  - Condition aggravated [Unknown]
  - Myasthenia gravis [Unknown]
  - Death [Fatal]

NARRATIVE: CASE EVENT DATE: 20150306
